FAERS Safety Report 10385998 (Version 1)
Quarter: 2014Q1

REPORT INFORMATION
  Report Type: Spontaneous
  Country: US (occurrence: None)
  Receive Date: 20140306
  Receipt Date: 20140306
  Transmission Date: 20141002
  Serious: Yes (Disabling, Other)
  Sender: FDA-Public Use
  Company Number: 163-21880-13101433

PATIENT
  Age: 64 Year
  Sex: Male

DRUGS (3)
  1. REVLIMID ( LENALIDOMIDE) ( 25 MILLIGRAM, CAPSULES) [Suspect]
     Indication: PLASMA CELL MYELOMA
     Route: 048
     Dates: start: 201203, end: 201207
  2. ARANESP (DARBEPOETIN ALFA) (INJECTION) [Concomitant]
  3. DEXAMETHASONE [Concomitant]

REACTIONS (4)
  - Dysphonia [None]
  - Anaemia [None]
  - Fatigue [None]
  - Thrombocytopenia [None]
